FAERS Safety Report 21993067 (Version 3)
Quarter: 2023Q2

REPORT INFORMATION
  Report Type: Report from Study
  Country: JP (occurrence: JP)
  Receive Date: 20230215
  Receipt Date: 20230420
  Transmission Date: 20230721
  Serious: Yes (Hospitalization, Other)
  Sender: FDA-Public Use
  Company Number: JP-NBI-J202204942BIPI

PATIENT
  Age: 78 Year
  Sex: Male
  Weight: 65 kg

DRUGS (30)
  1. OFEV [Suspect]
     Active Substance: NINTEDANIB
     Indication: Interstitial lung disease
     Route: 048
     Dates: start: 20211208, end: 20211221
  2. OFEV [Suspect]
     Active Substance: NINTEDANIB
     Indication: Systemic scleroderma
     Route: 048
     Dates: start: 20211222, end: 20220103
  3. OFEV [Suspect]
     Active Substance: NINTEDANIB
     Route: 048
     Dates: start: 20220104
  4. HARNAL [Concomitant]
     Active Substance: TAMSULOSIN HYDROCHLORIDE
     Indication: Product used for unknown indication
     Route: 065
  5. IMIDAPRIL HYDROCHLORIDE [Concomitant]
     Active Substance: IMIDAPRIL HYDROCHLORIDE
     Indication: Product used for unknown indication
     Route: 065
     Dates: end: 20221108
  6. BERAPROST SODIUM [Concomitant]
     Active Substance: BERAPROST SODIUM
     Indication: Product used for unknown indication
     Route: 065
     Dates: end: 20221110
  7. BERAPROST SODIUM [Concomitant]
     Active Substance: BERAPROST SODIUM
     Route: 065
  8. PREDNISOLONE [Concomitant]
     Active Substance: PREDNISOLONE
     Indication: Systemic scleroderma
     Route: 065
     Dates: end: 20211222
  9. PREDNISOLONE [Concomitant]
     Active Substance: PREDNISOLONE
     Route: 065
     Dates: start: 20211223, end: 20221110
  10. PREDNISOLONE [Concomitant]
     Active Substance: PREDNISOLONE
     Route: 065
  11. TADALAFIL [Concomitant]
     Active Substance: TADALAFIL
     Indication: Product used for unknown indication
     Route: 065
     Dates: end: 20220412
  12. COLCHICINE [Concomitant]
     Active Substance: COLCHICINE
     Indication: Prophylaxis
     Route: 065
     Dates: end: 20220802
  13. GLYCOSAMINOGLYCANS [Concomitant]
     Active Substance: GLYCOSAMINOGLYCANS
     Indication: Systemic scleroderma
     Route: 065
  14. LOCOID [Concomitant]
     Active Substance: HYDROCORTISONE BUTYRATE
     Indication: Systemic scleroderma
     Route: 065
  15. METHYLCOBALAMIN [Concomitant]
     Active Substance: METHYLCOBALAMIN
     Indication: Product used for unknown indication
     Route: 065
     Dates: start: 20220216, end: 20220412
  16. ADETPHOS [Concomitant]
     Active Substance: ADENOSINE TRIPHOSPHATE
     Indication: Product used for unknown indication
     Route: 065
     Dates: start: 20220216, end: 20220412
  17. EZETIMIBE [Concomitant]
     Active Substance: EZETIMIBE
     Indication: Product used for unknown indication
     Route: 065
  18. PRAVASTATIN SODIUM [Concomitant]
     Active Substance: PRAVASTATIN SODIUM
     Indication: Product used for unknown indication
     Route: 065
  19. ALLOPURINOL [Concomitant]
     Active Substance: ALLOPURINOL
     Indication: Product used for unknown indication
     Route: 065
     Dates: end: 20221110
  20. ALLOPURINOL [Concomitant]
     Active Substance: ALLOPURINOL
     Route: 065
  21. MIYA-BM [Concomitant]
     Active Substance: CLOSTRIDIUM BUTYRICUM SPORES STRAIN M-55
     Indication: Prophylaxis
     Route: 065
     Dates: end: 20220615
  22. ASPIRIN [Concomitant]
     Active Substance: ASPIRIN
     Indication: Prophylaxis
     Route: 065
  23. PIRENOXINE [Concomitant]
     Active Substance: PIRENOXINE
     Indication: Product used for unknown indication
     Route: 065
  24. URSODIOL [Concomitant]
     Active Substance: URSODIOL
     Indication: Prophylaxis
     Route: 065
     Dates: start: 20220803
  25. DULOXETINE [Concomitant]
     Active Substance: DULOXETINE
     Indication: Product used for unknown indication
     Route: 065
     Dates: end: 20221120
  26. TOCOPHERYL NICOTINATE, D-.ALPHA. [Concomitant]
     Active Substance: TOCOPHERYL NICOTINATE, D-.ALPHA.
     Indication: Systemic scleroderma
     Route: 065
  27. JUVELA [Concomitant]
     Active Substance: .ALPHA.-TOCOPHEROL\RETINOL
     Indication: Systemic scleroderma
     Route: 065
  28. NEXIUM [Concomitant]
     Active Substance: ESOMEPRAZOLE MAGNESIUM
     Indication: Prophylaxis
     Route: 065
     Dates: start: 20220216, end: 20220915
  29. DUTASTERIDE [Concomitant]
     Active Substance: DUTASTERIDE
     Indication: Product used for unknown indication
     Route: 065
  30. AMLODIPINE [Concomitant]
     Active Substance: AMLODIPINE BESYLATE
     Indication: Product used for unknown indication
     Route: 065
     Dates: end: 20221120

REACTIONS (6)
  - Systemic scleroderma [Recovered/Resolved]
  - Melaena [Recovered/Resolved]
  - Diarrhoea [Recovered/Resolved]
  - Hepatic function abnormal [Recovered/Resolved]
  - Anaemia [Recovered/Resolved]
  - C-reactive protein increased [Recovered/Resolved]

NARRATIVE: CASE EVENT DATE: 20211221
